FAERS Safety Report 8444033 (Version 4)
Quarter: 2013Q4

REPORT INFORMATION
  Report Type: Spontaneous
  Country: US (occurrence: US)
  Receive Date: 20120306
  Receipt Date: 20131015
  Transmission Date: 20140711
  Serious: Yes (Other)
  Sender: FDA-Public Use
  Company Number: US-ROCHE-1020273

PATIENT
  Age: 29 Year
  Sex: Female
  Weight: 68.1 kg

DRUGS (2)
  1. ACCUTANE [Suspect]
     Indication: ACNE
     Route: 048
     Dates: start: 19921019, end: 19921221
  2. ACCUTANE [Suspect]
     Route: 048
     Dates: start: 19921222, end: 199304

REACTIONS (9)
  - Inflammatory bowel disease [Unknown]
  - Irritable bowel syndrome [Unknown]
  - Colitis microscopic [Unknown]
  - Depression [Unknown]
  - Suicidal ideation [Unknown]
  - Arthritis [Unknown]
  - Myalgia [Unknown]
  - Dry skin [Unknown]
  - Haemorrhoids [Unknown]
